FAERS Safety Report 18452100 (Version 1)
Quarter: 2020Q4

REPORT INFORMATION
  Report Type: Spontaneous
  Country: BE (occurrence: BE)
  Receive Date: 20201102
  Receipt Date: 20201102
  Transmission Date: 20210114
  Serious: Yes (Death, Life-Threatening, Hospitalization, Other)
  Sender: FDA-Public Use
  Company Number: BE-ACCORD-206442

PATIENT
  Age: 43 Year
  Sex: Female

DRUGS (3)
  1. TACROLIMUS. [Suspect]
     Active Substance: TACROLIMUS
     Indication: IMMUNOSUPPRESSANT DRUG THERAPY
  2. METHYLPREDNISOLONE. [Suspect]
     Active Substance: METHYLPREDNISOLONE
     Indication: IMMUNOSUPPRESSANT DRUG THERAPY
  3. MYCOPHENOLIC ACID. [Suspect]
     Active Substance: MYCOPHENOLIC ACID
     Indication: IMMUNOSUPPRESSANT DRUG THERAPY

REACTIONS (14)
  - Acute sinusitis [Not Recovered/Not Resolved]
  - Central nervous system infection [Fatal]
  - Subarachnoid haemorrhage [Fatal]
  - Sinusitis fungal [Not Recovered/Not Resolved]
  - Ophthalmoplegia [Not Recovered/Not Resolved]
  - Sinusitis [Not Recovered/Not Resolved]
  - Encephalitis [Fatal]
  - Cytotoxic oedema [Not Recovered/Not Resolved]
  - Optic neuritis [Not Recovered/Not Resolved]
  - Coma [Not Recovered/Not Resolved]
  - Blindness [Not Recovered/Not Resolved]
  - Orbital apex syndrome [Not Recovered/Not Resolved]
  - Infective aneurysm [Fatal]
  - Mucormycosis [Fatal]
